FAERS Safety Report 6683028-0 (Version None)
Quarter: 2010Q2

REPORT INFORMATION
  Report Type: 
  Country: None (occurrence: None)
  Receive Date: 20100415
  Receipt Date: 20100409
  Transmission Date: 20101027
  Serious: Yes (Other)
  Sender: FDA-Public Use
  Company Number: JP-BAYER-200910223BYL

PATIENT
  Age: 61 Year
  Sex: Female
  Weight: 46 kg

DRUGS (17)
  1. NEXAVAR [Suspect]
     Indication: RENAL CELL CARCINOMA
     Dosage: UNIT DOSE: 200 MG
     Route: 048
     Dates: start: 20080715, end: 20080908
  2. OIF [Concomitant]
     Dosage: 10V
     Route: 065
     Dates: start: 20080411
  3. OIF [Concomitant]
     Dosage: 1V
     Route: 065
     Dates: start: 20080422
  4. CALONAL [Concomitant]
     Indication: PYREXIA
     Route: 048
     Dates: start: 20080422
  5. DECADRON [Concomitant]
     Dosage: TOTAL DAILY DOSE: 1 MG
     Route: 048
     Dates: start: 20080603
  6. FAMOTIDINE [Concomitant]
     Indication: PROPHYLAXIS AGAINST GASTROINTESTINAL ULCER
     Dosage: TOTAL DAILY DOSE: 40 MG
     Route: 048
     Dates: start: 20080603
  7. FAMOTIDINE [Concomitant]
     Route: 048
     Dates: start: 20091028
  8. ISOBIDE [Concomitant]
     Dosage: AS USED: 45 ML
     Route: 049
     Dates: start: 20080603
  9. MYSLEE [Concomitant]
     Indication: INSOMNIA
     Route: 048
     Dates: start: 20080701
  10. PANTOSIN [Concomitant]
     Dosage: TOTAL DAILY DOSE: 3 G
     Route: 048
     Dates: start: 20080725
  11. MAGNESIUM OXIDE [Concomitant]
     Indication: INFECTION PROPHYLAXIS
     Route: 048
     Dates: start: 20080725
  12. NEGMIN [Concomitant]
     Route: 049
     Dates: start: 20080727
  13. LECICARBON [Concomitant]
     Route: 054
     Dates: start: 20080728
  14. THERADIA [Concomitant]
     Indication: WOUND
     Route: 061
     Dates: start: 20080812
  15. MEDICON [Concomitant]
     Route: 048
     Dates: start: 20081114
  16. MUCODYNE [Concomitant]
     Route: 048
     Dates: start: 20081113
  17. MOBIC [Concomitant]
     Route: 048
     Dates: start: 20081117

REACTIONS (3)
  - HEPATIC FUNCTION ABNORMAL [None]
  - PALMAR-PLANTAR ERYTHRODYSAESTHESIA SYNDROME [None]
  - STOMATITIS [None]
